FAERS Safety Report 4486861-9 (Version None)
Quarter: 2004Q4

REPORT INFORMATION
  Report Type: 
  Country: None (occurrence: None)
  Receive Date: 20041022
  Receipt Date: 20041011
  Transmission Date: 20050328
  Serious: Yes (Life-Threatening, Hospitalization, Other)
  Sender: FDA-Public Use
  Company Number: 2004076002

PATIENT
  Age: 51 Year
  Sex: Male
  Weight: 72.5755 kg

DRUGS (1)
  1. NICOTROL [Suspect]
     Indication: SMOKING CESSATION THERAPY
     Dosage: 1 PATCH DAILY, TRANSDERMAL
     Route: 062
     Dates: start: 20020101

REACTIONS (4)
  - ABNORMAL DREAMS [None]
  - CHEST PAIN [None]
  - LUNG NEOPLASM MALIGNANT [None]
  - NEOPLASM [None]
